FAERS Safety Report 7950370-2 (Version None)
Quarter: 2011Q4

REPORT INFORMATION
  Report Type: 
  Country: None (occurrence: None)
  Receive Date: 20111130
  Receipt Date: 20111122
  Transmission Date: 20120403
  Serious: Yes (Other)
  Sender: FDA-Public Use
  Company Number: US-PFIZER INC-2011231841

PATIENT
  Sex: Female
  Weight: 77.1 kg

DRUGS (10)
  1. ACETYLSALICYLIC ACID [Concomitant]
     Indication: HEADACHE
     Dosage: 325 MG, AS NEEDED
  2. LIPITOR [Concomitant]
     Indication: BLOOD CHOLESTEROL INCREASED
     Dosage: 20 MG, 1X/DAY
     Route: 048
  3. ACETYLSALICYLIC ACID [Concomitant]
     Indication: MYALGIA
  4. NAPROXEN (ALEVE) [Concomitant]
     Indication: ARTHRITIS
     Dosage: UNK
  5. PREMARIN [Suspect]
     Dosage: 0.9 MG, DAILY
     Route: 048
  6. VIOXX [Suspect]
     Indication: ARTHRITIS
  7. PREMARIN [Suspect]
     Indication: ARTIFICIAL MENOPAUSE
     Dosage: 1.25 MG, DAILY
     Route: 048
     Dates: start: 19650625
  8. PREMARIN [Suspect]
     Dosage: 0.625 MG, DAILY
     Route: 048
     Dates: end: 20110922
  9. PROVERA [Suspect]
     Dosage: 3.25 MG, UNK
     Dates: start: 19650625
  10. PREVACID [Concomitant]
     Indication: GASTROOESOPHAGEAL REFLUX DISEASE
     Dosage: 10 MG, 1X/DAY
     Route: 048

REACTIONS (2)
  - HYPERTENSION [None]
  - WEIGHT DECREASED [None]
